FAERS Safety Report 8090943-2 (Version None)
Quarter: 2012Q1

REPORT INFORMATION
  Report Type: 
  Country: None (occurrence: None)
  Receive Date: 20120128
  Receipt Date: 20110729
  Transmission Date: 20120608
  Serious: No
  Sender: FDA-Public Use
  Company Number: US-ABBOTT-11P-163-0842821-00

PATIENT
  Sex: Male

DRUGS (4)
  1. EFFIENT [Concomitant]
     Indication: THROMBOSIS
  2. UNKNOWN HYPOGLYCEMIC MEDICATION [Concomitant]
     Indication: DIABETES MELLITUS
  3. ASPIRIN [Concomitant]
     Indication: PRODUCT USED FOR UNKNOWN INDICATION
  4. HUMIRA [Suspect]
     Indication: RHEUMATOID ARTHRITIS
     Route: 058
     Dates: start: 20110501

REACTIONS (3)
  - FATIGUE [None]
  - PYREXIA [None]
  - PULMONARY CONGESTION [None]
